FAERS Safety Report 9057171 (Version 4)
Quarter: 2013Q1

REPORT INFORMATION
  Report Type: Spontaneous
  Country: US (occurrence: US)
  Receive Date: 20130131
  Receipt Date: 20130312
  Transmission Date: 20140127
  Serious: Yes (Hospitalization, Other)
  Sender: FDA-Public Use
  Company Number: US-PFIZER INC-2013033377

PATIENT
  Age: 77 Year
  Sex: Female
  Weight: 58.96 kg

DRUGS (20)
  1. GLUCOTROL XL [Suspect]
     Indication: DIABETES MELLITUS
     Dosage: 2.5 MG, 1X/DAY
     Route: 048
  2. GLUCOTROL XL [Suspect]
     Dosage: 2.5 MG, 1X/DAY
  3. ATENOLOL [Concomitant]
     Dosage: 50 MG, 2X/DAY
  4. DIOVAN [Concomitant]
     Dosage: 160 MG, 1X/DAY
  5. LESCOL [Concomitant]
     Indication: BLOOD CHOLESTEROL INCREASED
     Dosage: 40 MG, 1X/DAY
  6. ASPIRIN [Concomitant]
     Dosage: 81 MG, 1X/DAY
  7. ASPIRIN [Concomitant]
     Dosage: 81 MG, UNK
  8. COLACE [Concomitant]
     Dosage: 100 MG, 2X/DAY
  9. PEPCID [Concomitant]
     Dosage: 20 MG, 2X/DAY
  10. B COMPLEX [Concomitant]
     Dosage: UNK
  11. METHOTREXATE [Concomitant]
     Dosage: UNK
  12. METHOTREXATE [Concomitant]
     Dosage: 100 MG, WEEKLY (25MG 4 TABLETS ONCE A WEEK)
  13. FOLIC ACID [Concomitant]
     Dosage: 100 MG, 1X/DAY
  14. FOLIC ACID [Concomitant]
     Dosage: 1 MG, 1X/DAY
  15. REMICADE [Concomitant]
     Indication: RHEUMATOID ARTHRITIS
     Dosage: UNK
  16. REMICADE [Concomitant]
     Dosage: UNK, EVERY 6 WEEKS
  17. VITAMIN D [Concomitant]
     Dosage: UNK
  18. VITAMIN D [Concomitant]
     Dosage: UNK, 1X/DAY
  19. CENTRUM SILVER [Concomitant]
     Dosage: UNK
  20. CARDIZEM [Concomitant]
     Dosage: 120 MG, 1X/DAY

REACTIONS (5)
  - Myocardial infarction [Recovering/Resolving]
  - Arteriosclerosis coronary artery [Recovering/Resolving]
  - Malaise [Recovering/Resolving]
  - Blood test abnormal [Unknown]
  - Carpal tunnel syndrome [Not Recovered/Not Resolved]
